FAERS Safety Report 23660580 (Version 1)
Quarter: 2024Q1

REPORT INFORMATION
  Report Type: Spontaneous
  Country: US (occurrence: US)
  Receive Date: 20240322
  Receipt Date: 20240322
  Transmission Date: 20240409
  Serious: Yes (Hospitalization, Other)
  Sender: FDA-Public Use
  Company Number: US-UROGEN PHARMA LTD.-2024-UGN-000032

PATIENT

DRUGS (5)
  1. JELMYTO [Suspect]
     Active Substance: MITOMYCIN
     Indication: Transitional cell cancer of the renal pelvis and ureter
     Dosage: 9 CC, (INSTILLATION) ONCE A WEEK
     Dates: start: 20240126, end: 20240126
  2. JELMYTO [Suspect]
     Active Substance: MITOMYCIN
     Dosage: 9 CC, (INSTILLATION) ONCE A WEEK
     Dates: start: 20240201, end: 20240201
  3. JELMYTO [Suspect]
     Active Substance: MITOMYCIN
     Dosage: 9 CC, (INSTILLATION) ONCE A WEEK
     Dates: start: 20240209, end: 20240209
  4. JELMYTO [Suspect]
     Active Substance: MITOMYCIN
     Dosage: 9 CC, (INSTILLATION) ONCE A WEEK
     Dates: start: 20240215, end: 20240215
  5. JELMYTO [Suspect]
     Active Substance: MITOMYCIN
     Dosage: 9 CC, (INSTILLATION) ONCE A WEEK
     Dates: start: 20240220, end: 20240220

REACTIONS (5)
  - Presyncope [Unknown]
  - Metastatic neoplasm [Unknown]
  - Hyperkalaemia [Unknown]
  - Pain [Recovered/Resolved]
  - Adverse event [Recovered/Resolved]

NARRATIVE: CASE EVENT DATE: 20240101
